FAERS Safety Report 9439010 (Version 3)
Quarter: 2014Q1

REPORT INFORMATION
  Report Type: Report from Study
  Country: ES (occurrence: ES)
  Receive Date: 20130802
  Receipt Date: 20140312
  Transmission Date: 20141002
  Serious: Yes (Death, Other)
  Sender: FDA-Public Use
  Company Number: ES-CELGENEUS-144-21880-13073812

PATIENT
  Sex: 0

DRUGS (7)
  1. REVLIMID [Suspect]
     Indication: DIFFUSE LARGE B-CELL LYMPHOMA
     Dosage: 5, 10, OR 15 MG
     Route: 048
  2. REVLIMID [Suspect]
     Indication: BURKITT^S LYMPHOMA
  3. RITUXIMAB [Concomitant]
     Indication: DIFFUSE LARGE B-CELL LYMPHOMA
     Route: 065
  4. ETOPOSIDE [Concomitant]
     Indication: DIFFUSE LARGE B-CELL LYMPHOMA
     Route: 065
  5. CISPLATIN [Concomitant]
     Indication: DIFFUSE LARGE B-CELL LYMPHOMA
     Route: 065
  6. METHYLPREDNISOLONE [Concomitant]
     Indication: DIFFUSE LARGE B-CELL LYMPHOMA
     Route: 065
  7. CYTARABINE [Concomitant]
     Indication: DIFFUSE LARGE B-CELL LYMPHOMA
     Route: 065

REACTIONS (14)
  - Nephropathy toxic [Recovered/Resolved]
  - Electrolyte imbalance [Recovered/Resolved]
  - Angioedema [Recovered/Resolved]
  - Transplant failure [Not Recovered/Not Resolved]
  - Escherichia bacteraemia [Recovered/Resolved]
  - Thrombosis [Recovered/Resolved]
  - Hypocalcaemia [Recovered/Resolved]
  - Hypomagnesaemia [Recovered/Resolved]
  - Lymphoma [Fatal]
  - Toxicity to various agents [Unknown]
  - Neutropenia [Unknown]
  - Thrombocytopenia [Unknown]
  - Lymphoma [Unknown]
  - Treatment failure [Unknown]
